FAERS Safety Report 5762413-5 (Version None)
Quarter: 2008Q2

REPORT INFORMATION
  Report Type: 
  Country: None (occurrence: None)
  Receive Date: 20080527
  Receipt Date: 20080206
  Transmission Date: 20081010
  Serious: Yes (Death)
  Sender: FDA-Public Use
  Company Number: 255740

PATIENT
  Age: 66 Year
  Sex: Female

DRUGS (2)
  1. HERCEPTIN [Suspect]
     Indication: BREAST CANCER
     Dates: start: 20070201, end: 20070405
  2. HERCEPTIN [Suspect]
     Indication: BREAST CANCER
     Dates: start: 20070921

REACTIONS (2)
  - MITRAL VALVE INCOMPETENCE [None]
  - VENTRICULAR TACHYCARDIA [None]
